FAERS Safety Report 18081561 (Version 1)
Quarter: 2020Q3

REPORT INFORMATION
  Report Type: Spontaneous
  Country: US (occurrence: US)
  Receive Date: 20200728
  Receipt Date: 20200728
  Transmission Date: 20201103
  Serious: Yes (Life-Threatening)
  Sender: FDA-Public Use
  Company Number: US-THE PROACTIV LLC-2087871

PATIENT
  Age: 15 Year
  Sex: Male

DRUGS (5)
  1. PROACTIV MD DAILY OIL CONTROL SPF 30 [Concomitant]
     Active Substance: AVOBENZONE\OCTISALATE\OCTOCRYLENE
     Route: 061
     Dates: start: 20200704, end: 20200705
  2. PROACTIV REDNESS RELIEF SERUM  COSMETIC [Concomitant]
     Route: 061
     Dates: start: 20200704, end: 20200705
  3. PROACTIV MD ADAPALENE ACNE TREATMENT [Concomitant]
     Active Substance: ADAPALENE
     Route: 061
     Dates: start: 20200704, end: 20200705
  4. PROACTIV SOLUTION DEEP CLEANSING WASH [Suspect]
     Active Substance: SALICYLIC ACID
     Indication: PRODUCT USED FOR UNKNOWN INDICATION
     Route: 061
     Dates: start: 20200704, end: 20200705
  5. PROACTIV MD DEEP CLEANSING FACE WASH ?COSMETIC [Concomitant]
     Route: 061
     Dates: start: 20200704, end: 20200705

REACTIONS (6)
  - Urticaria [Recovered/Resolved]
  - Rash macular [Recovered/Resolved]
  - Asthma [Recovered/Resolved]
  - Anaphylactic shock [Recovered/Resolved]
  - Swelling face [Recovered/Resolved]
  - Application site erythema [Recovered/Resolved]

NARRATIVE: CASE EVENT DATE: 20200704
